FAERS Safety Report 11000967 (Version 1)
Quarter: 2015Q2

REPORT INFORMATION
  Report Type: Spontaneous
  Country: US (occurrence: US)
  Receive Date: 20150408
  Receipt Date: 20150408
  Transmission Date: 20150821
  Serious: No
  Sender: FDA-Public Use
  Company Number: US-SA-2014SA147727

PATIENT
  Age: 78 Year
  Sex: Female

DRUGS (1)
  1. ALLEGRA [Suspect]
     Active Substance: FEXOFENADINE HYDROCHLORIDE
     Indication: EAR DISORDER
     Dosage: LOT EK099? (7 OR T, LABEL IS WRINKLED)
     Route: 048
     Dates: start: 20141022

REACTIONS (1)
  - Sleep disorder [Not Recovered/Not Resolved]
